FAERS Safety Report 8439854-0 (Version None)
Quarter: 2012Q2

REPORT INFORMATION
  Report Type: 
  Country: None (occurrence: None)
  Receive Date: 20120611
  Receipt Date: 20120611
  Transmission Date: 20120825
  Serious: No
  Sender: FDA-Public Use
  Company Number: None

PATIENT
  Sex: Female
  Weight: 56.246 kg

DRUGS (1)
  1. DICLOFENAC SODIUM [Suspect]
     Indication: ARTHRITIS
     Dosage: 1 TABLET, TWICE DAILY, PO
     Route: 048
     Dates: start: 20120201, end: 20120317

REACTIONS (4)
  - SUICIDAL IDEATION [None]
  - BLOOD PRESSURE INCREASED [None]
  - LETHARGY [None]
  - DEPRESSION [None]
